FAERS Safety Report 20307659 (Version 1)
Quarter: 2022Q1

REPORT INFORMATION
  Report Type: Spontaneous
  Country: GB (occurrence: GB)
  Receive Date: 20220107
  Receipt Date: 20220107
  Transmission Date: 20220423
  Serious: Yes (Disabling, Congenital Anomaly, Other)
  Sender: FDA-Public Use
  Company Number: GB-ABBVIE-22K-167-4223309-00

PATIENT
  Sex: Male
  Weight: 3.59 kg

DRUGS (1)
  1. EPILIM [Suspect]
     Active Substance: VALPROATE SODIUM
     Indication: Maternal exposure timing unspecified
     Route: 064

REACTIONS (13)
  - Spina bifida occulta [Unknown]
  - Autism spectrum disorder [Unknown]
  - Foot deformity [Unknown]
  - Cryptorchism [Unknown]
  - Metamorphopsia [Unknown]
  - Nervous system disorder [Unknown]
  - Dysuria [Unknown]
  - Enuresis [Unknown]
  - Hernia [Unknown]
  - Learning disorder [Unknown]
  - Behaviour disorder [Unknown]
  - Unevaluable event [Unknown]
  - Foetal exposure during pregnancy [Unknown]
